FAERS Safety Report 8713456 (Version 2)
Quarter: 2013Q1

REPORT INFORMATION
  Report Type: Spontaneous
  Country: BR (occurrence: BR)
  Receive Date: 20120808
  Receipt Date: 20130304
  Transmission Date: 20140127
  Serious: Yes (Hospitalization, Other)
  Sender: FDA-Public Use
  Company Number: PHHY2012BR067980

PATIENT
  Sex: Female

DRUGS (5)
  1. DIOVAN AMLO FIX [Suspect]
     Indication: HYPERTENSION
     Dosage: 1 TABLET (160/5 MG), DAILY
  2. PROLOPA [Concomitant]
     Indication: PROPHYLAXIS
     Dosage: 1 DF (50/200 MG), BID
     Route: 048
     Dates: start: 201212
  3. LIORAM [Concomitant]
     Indication: SLEEP DISORDER
     Dosage: 10 MG, DAILY
     Dates: start: 201212
  4. AMITRIPTYLINE [Concomitant]
     Indication: SLEEP DISORDER
     Dosage: 1 DF, DAILY
     Route: 048
     Dates: start: 201212
  5. AKINETON                                /AUS/ [Concomitant]
     Indication: PROPHYLAXIS
     Dosage: 2 MG, BID
     Route: 048
     Dates: start: 201212

REACTIONS (6)
  - Cerebrovascular accident [Recovered/Resolved]
  - Memory impairment [Not Recovered/Not Resolved]
  - Vomiting [Not Recovered/Not Resolved]
  - Confusional state [Unknown]
  - Blood pressure increased [Not Recovered/Not Resolved]
  - Tremor [Recovered/Resolved]
